FAERS Safety Report 23622397 (Version 1)
Quarter: 2024Q1

REPORT INFORMATION
  Report Type: Spontaneous
  Country: US (occurrence: None)
  Receive Date: 20240312
  Receipt Date: 20240312
  Transmission Date: 20240410
  Serious: Yes (Hospitalization)
  Sender: FDA-Public Use
  Company Number: None

PATIENT
  Sex: Male

DRUGS (3)
  1. NPLATE [Suspect]
     Active Substance: ROMIPLOSTIM
     Indication: Thrombocytopenia
     Dosage: FREQUENCY : WEEKLY;?
     Route: 058
     Dates: start: 202312
  2. STERILE WATER [Concomitant]
  3. NYVEPRIA [Concomitant]
     Active Substance: PEGFILGRASTIM-APGF

REACTIONS (2)
  - Localised infection [None]
  - Immunosuppression [None]
